FAERS Safety Report 20786003 (Version 1)
Quarter: 2022Q2

REPORT INFORMATION
  Report Type: Spontaneous
  Country: US (occurrence: None)
  Receive Date: 20220504
  Receipt Date: 20220504
  Transmission Date: 20220720
  Serious: No
  Sender: FDA-Public Use
  Company Number: US-ROCHE-2985146

PATIENT
  Age: 49 Year
  Sex: Female
  Weight: 54.480 kg

DRUGS (9)
  1. OCREVUS [Suspect]
     Active Substance: OCRELIZUMAB
     Indication: Progressive multiple sclerosis
     Dosage: 2ND HALF DOSE DUE 22-DEC-2021
     Route: 042
     Dates: start: 20211208
  2. BENADRYL [Suspect]
     Active Substance: DIPHENHYDRAMINE HYDROCHLORIDE
     Indication: Drug hypersensitivity
     Route: 042
     Dates: start: 20211208
  3. TYLENOL [Concomitant]
     Active Substance: ACETAMINOPHEN
     Dosage: MORE DOSAGE INFORMATION X2
     Route: 048
     Dates: start: 20211208
  4. SOLU-MEDROL [Concomitant]
     Active Substance: METHYLPREDNISOLONE SODIUM SUCCINATE
     Route: 042
     Dates: start: 20211208
  5. GABAPENTIN [Concomitant]
     Active Substance: GABAPENTIN
     Route: 048
  6. GABAPENTIN [Concomitant]
     Active Substance: GABAPENTIN
     Dosage: ONCE A DAY AT BEDTIME
     Route: 048
  7. FLUOXETINE [Concomitant]
     Active Substance: FLUOXETINE HYDROCHLORIDE
     Route: 048
  8. VITAMIN D3 [Concomitant]
     Active Substance: CHOLECALCIFEROL
     Route: 048
  9. FLAXSEED [Concomitant]
     Active Substance: FLAX SEED
     Route: 048

REACTIONS (2)
  - Hypersensitivity [Recovered/Resolved]
  - Unevaluable event [Recovered/Resolved]

NARRATIVE: CASE EVENT DATE: 20211208
